FAERS Safety Report 6708431-1 (Version None)
Quarter: 2010Q2

REPORT INFORMATION
  Report Type: 
  Country: None (occurrence: None)
  Receive Date: 20100503
  Receipt Date: 20090921
  Transmission Date: 20101027
  Serious: No
  Sender: FDA-Public Use
  Company Number: US-ASTRAZENECA-2009SE14305

PATIENT
  Age: 52 Year
  Sex: Female

DRUGS (4)
  1. NEXIUM [Suspect]
     Indication: ULCER
     Route: 048
     Dates: start: 20080901, end: 20090301
  2. NEXIUM [Suspect]
     Route: 048
     Dates: start: 20090301
  3. DIAZEPAM [Concomitant]
     Indication: ANXIETY
  4. TRAMADOL HCL [Concomitant]

REACTIONS (2)
  - RECTAL HAEMORRHAGE [None]
  - VOMITING [None]
